FAERS Safety Report 24401557 (Version 1)
Quarter: 2024Q4

REPORT INFORMATION
  Report Type: Spontaneous
  Country: US (occurrence: US)
  Receive Date: 20241007
  Receipt Date: 20241007
  Transmission Date: 20250114
  Serious: No
  Sender: ALK-ABELLO
  Company Number: US-ALK-ABELLO A/S-2024AA003511

PATIENT

DRUGS (18)
  1. CARYA ILLINOINENSIS POLLEN [Suspect]
     Active Substance: CARYA ILLINOINENSIS POLLEN
     Indication: Diagnostic procedure
  2. CETIRIZINE [Concomitant]
     Active Substance: CETIRIZINE HYDROCHLORIDE
     Indication: Product used for unknown indication
     Dosage: 10 MILLIGRAM, TABLE
     Dates: start: 20240826
  3. MOMETASONE FUROATE [Concomitant]
     Active Substance: MOMETASONE FUROATE
     Indication: Product used for unknown indication
     Dosage: 50 MCG/ACTUATION NASAL SPRAY
     Route: 045
     Dates: start: 20240826
  4. MONTELUKAST SODIUM [Concomitant]
     Active Substance: MONTELUKAST SODIUM
     Indication: Product used for unknown indication
     Dosage: 4 MICROGRAM, TABLET
     Route: 048
     Dates: start: 20240624
  5. TACROLIMUS [Concomitant]
     Active Substance: TACROLIMUS
     Indication: Product used for unknown indication
     Dosage: 0.03 % TOPICAL OINTMENT
     Route: 061
     Dates: start: 20240826
  6. TRIAMCINOLONE ACETONIDE [Concomitant]
     Active Substance: TRIAMCINOLONE ACETONIDE
     Indication: Product used for unknown indication
     Dosage: 0.1 % TOPICAL CREAM
     Route: 061
     Dates: start: 20240826
  7. DAE BULK 1263 [Concomitant]
  8. EDIBLE ROCK CRAB [Concomitant]
     Active Substance: EDIBLE ROCK CRAB
  9. LOBSTER, UNSPECIFIED [Concomitant]
     Active Substance: LOBSTER, UNSPECIFIED
  10. DAE BULK 733 [Concomitant]
  11. CRANGON SHRIMP [Concomitant]
     Active Substance: CRANGON SHRIMP
  12. DAE BULK 764 [Concomitant]
  13. DAE BULK 765 [Concomitant]
  14. DAE BULK 763 [Concomitant]
  15. DAE BULK 1256 [Concomitant]
  16. DAE BULK 766 [Concomitant]
  17. PISTACHIO NUT [Concomitant]
     Active Substance: PISTACHIO
  18. ALLERGENIC EXTRACT- PEANUT ARACHIS HYPOGAEA [Concomitant]
     Active Substance: ALLERGENIC EXTRACT- PEANUT ARACHIS HYPOGAEA

REACTIONS (1)
  - False negative investigation result [Unknown]
